FAERS Safety Report 6990299-X (Version None)
Quarter: 2010Q3

REPORT INFORMATION
  Report Type: 
  Country: None (occurrence: None)
  Receive Date: 20100916
  Receipt Date: 20100519
  Transmission Date: 20110219
  Serious: Yes (Hospitalization)
  Sender: FDA-Public Use
  Company Number: FR-PFIZER INC-2010063476

PATIENT
  Sex: Male

DRUGS (6)
  1. LYRICA [Suspect]
     Indication: NEURALGIA
     Dosage: 100 MG, 2X/DAY
     Route: 048
     Dates: end: 20100326
  2. CEFTAZIDIME [Suspect]
     Indication: ERYSIPELAS
     Dosage: 1 G, 3X/DAY
     Route: 042
     Dates: start: 20100319, end: 20100324
  3. PARACETAMOL [Suspect]
     Indication: PAIN
     Dosage: 1 G, AS NEEDED
     Route: 048
     Dates: start: 20100319, end: 20100326
  4. PYOSTACINE [Suspect]
     Indication: ERYSIPELAS
     Dosage: 1 G, 3X/DAY
     Route: 048
     Dates: start: 20100319, end: 20100327
  5. PRAXILENE [Suspect]
     Indication: ARTERIAL DISORDER
     Dosage: 200 MG, 2X/DAY
     Route: 048
     Dates: end: 20100326
  6. ECONAZOLE [Concomitant]
     Dosage: UNK

REACTIONS (1)
  - AGRANULOCYTOSIS [None]
